FAERS Safety Report 14963234 (Version 1)
Quarter: 2018Q2

REPORT INFORMATION
  Report Type: Spontaneous
  Country: US (occurrence: US)
  Receive Date: 20180601
  Receipt Date: 20180601
  Transmission Date: 20180711
  Serious: No
  Sender: FDA-Public Use
  Company Number: US-BAYER-2018-103044

PATIENT
  Sex: Female

DRUGS (2)
  1. ESTRADIOL. [Suspect]
     Active Substance: ESTRADIOL
     Route: 062
  2. CLIMARA [Suspect]
     Active Substance: ESTRADIOL
     Indication: PARATHYROID TUMOUR
     Dosage: UNK
     Route: 062

REACTIONS (4)
  - Application site irritation [None]
  - Product adhesion issue [None]
  - Product use in unapproved indication [None]
  - Application site urticaria [None]
